FAERS Safety Report 6130964-X (Version None)
Quarter: 2009Q1

REPORT INFORMATION
  Report Type: 
  Country: None (occurrence: None)
  Receive Date: 20090325
  Receipt Date: 20090310
  Transmission Date: 20090719
  Serious: Yes (Death)
  Sender: FDA-Public Use
  Company Number: NL-PFIZER INC-2006040877

PATIENT

DRUGS (7)
  1. LYRICA [Suspect]
     Indication: NEURALGIA
     Route: 048
     Dates: start: 20060304, end: 20060304
  2. LYRICA [Suspect]
     Indication: NEUROPATHY PERIPHERAL
  3. DIURAL [Concomitant]
     Route: 048
  4. THEO-DUR [Concomitant]
     Route: 048
  5. SALMETEROL [Concomitant]
     Route: 055
  6. ATROVENT [Concomitant]
     Route: 055
  7. ALL OTHER THERAPEUTIC PRODUCTS [Concomitant]
     Route: 055

REACTIONS (1)
  - SUDDEN DEATH [None]
